FAERS Safety Report 8993345 (Version 1)
Quarter: 2013Q1

REPORT INFORMATION
  Report Type: Spontaneous
  Country: DE (occurrence: DE)
  Receive Date: 20130102
  Receipt Date: 20130102
  Transmission Date: 20140127
  Serious: Yes (Other)
  Sender: FDA-Public Use
  Company Number: DE-MYLANLABS-2012S1026266

PATIENT
  Age: 22 Year
  Sex: Female

DRUGS (1)
  1. PAROXETIN [Suspect]
     Indication: DEPRESSION
     Dosage: 40 [MG/D ]
     Route: 048

REACTIONS (2)
  - Exposure during pregnancy [Unknown]
  - Sleep disorder [Unknown]
